FAERS Safety Report 12774058 (Version 1)
Quarter: 2016Q3

REPORT INFORMATION
  Report Type: Spontaneous
  Country: US (occurrence: US)
  Receive Date: 20160923
  Receipt Date: 20160923
  Transmission Date: 20161109
  Serious: No
  Sender: FDA-Public Use
  Company Number: US-TEVA-695372USA

PATIENT
  Age: 53 Year
  Sex: Female

DRUGS (9)
  1. COPAXONE [Suspect]
     Active Substance: GLATIRAMER ACETATE
     Indication: MULTIPLE SCLEROSIS
     Dosage: 20 MILLIGRAM/MILLILITERS DAILY;
     Route: 058
  2. SYNTHROID [Concomitant]
     Active Substance: LEVOTHYROXINE SODIUM
  3. BACLOFEN. [Concomitant]
     Active Substance: BACLOFEN
  4. MULTIVITAMINS [Concomitant]
     Active Substance: VITAMINS
  5. IMITREX [Concomitant]
     Active Substance: SUMATRIPTAN SUCCINATE
  6. VITAMIN D [Concomitant]
     Active Substance: CHOLECALCIFEROL
  7. IBUPROFEN. [Concomitant]
     Active Substance: IBUPROFEN
  8. AMPYRA [Concomitant]
     Active Substance: DALFAMPRIDINE
  9. TOPAMAX [Concomitant]
     Active Substance: TOPIRAMATE

REACTIONS (1)
  - Fall [Unknown]

NARRATIVE: CASE EVENT DATE: 201607
